FAERS Safety Report 6019206-3 (Version None)
Quarter: 2008Q4

REPORT INFORMATION
  Report Type: 
  Country: None (occurrence: None)
  Receive Date: 20081224
  Receipt Date: 20081210
  Transmission Date: 20090506
  Serious: Yes (Other)
  Sender: FDA-Public Use
  Company Number: US-AVENTIS-200818618US

PATIENT
  Sex: Female

DRUGS (2)
  1. OPTICLIK (INSULIN INJECTION PEN) [Suspect]
     Dosage: DOSE: UNK
  2. LANTUS [Suspect]
     Dosage: DOSE: UNK

REACTIONS (2)
  - DEVICE FAILURE [None]
  - NO ADVERSE EVENT [None]
